FAERS Safety Report 7087035-8 (Version None)
Quarter: 2010Q4

REPORT INFORMATION
  Report Type: 
  Country: None (occurrence: None)
  Receive Date: 20101106
  Receipt Date: 20101001
  Transmission Date: 20110411
  Serious: No
  Sender: FDA-Public Use
  Company Number: US-WYE-H17786910

PATIENT
  Sex: Female
  Weight: 74.91 kg

DRUGS (3)
  1. PREMARIN [Suspect]
     Indication: VAGINAL INFECTION
     Dosage: 0.5 G ONCE DAILY
     Route: 067
     Dates: start: 20100723, end: 20100701
  2. AMFEBUTAMONE [Concomitant]
  3. LISINOPRIL [Concomitant]

REACTIONS (2)
  - PRODUCT QUALITY ISSUE [None]
  - VULVOVAGINAL PAIN [None]
